FAERS Safety Report 15785685 (Version 1)
Quarter: 2019Q1

REPORT INFORMATION
  Report Type: Spontaneous
  Country: US (occurrence: US)
  Receive Date: 20190102
  Receipt Date: 20190102
  Transmission Date: 20190417
  Serious: Yes (Other)
  Sender: FDA-Public Use
  Company Number: None

PATIENT
  Age: 45 Year
  Sex: Male
  Weight: 139.05 kg

DRUGS (4)
  1. AMLODIPINE BESYLATE/VALSARTAN [Suspect]
     Active Substance: AMLODIPINE BESYLATE\VALSARTAN
     Indication: HYPERTENSION
     Dosage: ?          QUANTITY:90 CAPSULE(S);?
     Route: 048
     Dates: start: 20180907, end: 20181228
  2. TESTOSTERONE GEL [Concomitant]
     Active Substance: TESTOSTERONE
  3. AMLODIPINE [Concomitant]
     Active Substance: AMLODIPINE BESYLATE
  4. CPAP [Concomitant]
     Active Substance: DEVICE

REACTIONS (2)
  - Swollen tongue [None]
  - Pharyngeal oedema [None]

NARRATIVE: CASE EVENT DATE: 20181222
